FAERS Safety Report 10310527 (Version 4)
Quarter: 2014Q3

REPORT INFORMATION
  Report Type: Spontaneous
  Country: TR (occurrence: TR)
  Receive Date: 20140717
  Receipt Date: 20140822
  Transmission Date: 20150326
  Serious: Yes (Other)
  Sender: FDA-Public Use
  Company Number: TR-NOVOPROD-415667

PATIENT
  Sex: Male
  Weight: 2.3 kg

DRUGS (3)
  1. NOVORAPID [Suspect]
     Active Substance: INSULIN ASPART
     Indication: GESTATIONAL DIABETES
     Dosage: 24 U, QD
     Route: 064
     Dates: start: 20140319, end: 20140507
  2. SANTAFER FORT [Concomitant]
     Indication: MINERAL SUPPLEMENTATION
     Dosage: 1X1
     Route: 064
     Dates: start: 201401, end: 20140507
  3. DECAVIT                            /06014801/ [Concomitant]
     Indication: VITAMIN SUPPLEMENTATION
     Dosage: 1X1
     Route: 064
     Dates: start: 201401, end: 20140507

REACTIONS (2)
  - Foetal exposure during pregnancy [Recovered/Resolved]
  - Foetal heart rate decreased [Recovered/Resolved]

NARRATIVE: CASE EVENT DATE: 20140319
